FAERS Safety Report 16601899 (Version 2)
Quarter: 2019Q3

REPORT INFORMATION
  Report Type: Spontaneous
  Country: CO (occurrence: CO)
  Receive Date: 20190719
  Receipt Date: 20190725
  Transmission Date: 20191004
  Serious: No
  Sender: FDA-Public Use
  Company Number: CO-BIOMARINAP-CO-2019-124770

PATIENT
  Age: 10 Year
  Sex: Male

DRUGS (1)
  1. VIMIZIM [Suspect]
     Active Substance: ELOSULFASE ALFA
     Indication: MUCOPOLYSACCHARIDOSIS IV
     Dosage: 60 MILLIGRAM, QW
     Route: 042
     Dates: start: 20150508

REACTIONS (1)
  - Splenic cyst [Not Recovered/Not Resolved]

NARRATIVE: CASE EVENT DATE: 201807
